FAERS Safety Report 10426750 (Version 2)
Quarter: 2014Q3

REPORT INFORMATION
  Report Type: Report from Study
  Country: US (occurrence: US)
  Receive Date: 20140903
  Receipt Date: 20140903
  Transmission Date: 20150326
  Serious: Yes (Death, Other)
  Sender: FDA-Public Use
  Company Number: US-ASTELLAS-2014US011038

PATIENT
  Age: 56 Year
  Sex: Male

DRUGS (1)
  1. ERLOTINIB [Suspect]
     Active Substance: ERLOTINIB
     Indication: NON-SMALL CELL LUNG CANCER
     Route: 048
     Dates: start: 20050727, end: 20050809

REACTIONS (4)
  - Nausea [Unknown]
  - Vomiting [Unknown]
  - Lung neoplasm malignant [Fatal]
  - Dermatitis acneiform [Unknown]

NARRATIVE: CASE EVENT DATE: 20050727
